FAERS Safety Report 7550149-X (Version None)
Quarter: 2011Q2

REPORT INFORMATION
  Report Type: 
  Country: None (occurrence: None)
  Receive Date: 20110615
  Receipt Date: 20110613
  Transmission Date: 20111010
  Serious: Yes (Other)
  Sender: FDA-Public Use
  Company Number: US-UCBSA-035233

PATIENT
  Sex: Female
  Weight: 47.6 kg

DRUGS (3)
  1. CLONOPIN [Concomitant]
     Indication: SLEEP DISORDER
     Dosage: 2 MG AT HS - STARTED 6-7 YEARS AGO
     Route: 048
  2. LEVETIRACETAM [Suspect]
     Indication: CONVULSION
     Dosage: 500 MG AT 12PM , 1000 MG AT 18PM
     Route: 048
     Dates: start: 20100101
  3. LACOSAMIDE [Suspect]
     Indication: COMPLEX PARTIAL SEIZURES
     Dosage: 200 MG IN AM, 200 MG AT HS, 400 MG DAILY
     Route: 048
     Dates: start: 20100901

REACTIONS (2)
  - MUSCULAR WEAKNESS [None]
  - LOSS OF CONSCIOUSNESS [None]
